FAERS Safety Report 5154026-3 (Version None)
Quarter: 2006Q4

REPORT INFORMATION
  Report Type: 
  Country: None (occurrence: None)
  Receive Date: 20061120
  Receipt Date: 20061115
  Transmission Date: 20070319
  Serious: Yes (Hospitalization)
  Sender: FDA-Public Use
  Company Number: JP-JPN-A200604915

PATIENT
  Age: 91 Year
  Sex: Female

DRUGS (1)
  1. VALTREX [Suspect]
     Indication: HERPES SIMPLEX
     Dosage: 1000MG THREE TIMES PER DAY
     Route: 048
     Dates: start: 20061106, end: 20061113

REACTIONS (4)
  - BLOOD CREATININE INCREASED [None]
  - DEPRESSED LEVEL OF CONSCIOUSNESS [None]
  - PSYCHIATRIC SYMPTOM [None]
  - RENAL FAILURE ACUTE [None]
